FAERS Safety Report 23150577 (Version 2)
Quarter: 2023Q4

REPORT INFORMATION
  Report Type: Spontaneous
  Country: TR (occurrence: TR)
  Receive Date: 20231106
  Receipt Date: 20231109
  Transmission Date: 20240109
  Serious: Yes (Hospitalization, Other)
  Sender: FDA-Public Use
  Company Number: TR-SA-SAC20231101000627

PATIENT
  Age: 63 Year
  Sex: Male

DRUGS (3)
  1. ELOXATIN [Suspect]
     Active Substance: OXALIPLATIN
     Indication: Colon neoplasm
     Dosage: 262.6 MG, TOTAL
     Route: 042
     Dates: start: 20230920, end: 20230920
  2. CALCIUM [Concomitant]
     Active Substance: CALCIUM
     Indication: Electrolyte substitution therapy
     Dosage: UNK, TOTAL, 1X1 AMPOULE
     Route: 042
     Dates: start: 20230920, end: 20230920
  3. MAGNESIUM SULFATE [Concomitant]
     Active Substance: MAGNESIUM SULFATE\MAGNESIUM SULFATE HEPTAHYDRATE
     Indication: Electrolyte substitution therapy
     Dosage: UNK, TOTAL
     Route: 042
     Dates: start: 20230920, end: 20230920

REACTIONS (3)
  - Loss of consciousness [Recovered/Resolved]
  - Chest pain [Recovered/Resolved]
  - Hypotension [Recovered/Resolved]

NARRATIVE: CASE EVENT DATE: 20230920
